FAERS Safety Report 13427843 (Version 1)
Quarter: 2017Q2

REPORT INFORMATION
  Report Type: Spontaneous
  Country: GB (occurrence: GB)
  Receive Date: 20170411
  Receipt Date: 20170411
  Transmission Date: 20170830
  Serious: Yes (Other)
  Sender: FDA-Public Use
  Company Number: GB-TEVA-755367ACC

PATIENT
  Sex: Female

DRUGS (6)
  1. CLONIDINE. [Concomitant]
     Active Substance: CLONIDINE
  2. METFORMIN [Suspect]
     Active Substance: METFORMIN HYDROCHLORIDE
     Indication: TYPE 2 DIABETES MELLITUS
     Route: 048
     Dates: start: 201604, end: 201702
  3. GABAPENTIN. [Concomitant]
     Active Substance: GABAPENTIN
  4. PARACETAMOL [Concomitant]
     Active Substance: ACETAMINOPHEN
  5. LANSOPRAZOLE. [Concomitant]
     Active Substance: LANSOPRAZOLE
  6. DIHYDROCODEINE [Concomitant]
     Active Substance: DIHYDROCODEINE

REACTIONS (9)
  - Back pain [Recovered/Resolved]
  - Gastrooesophageal reflux disease [Recovered/Resolved]
  - Dizziness [Recovered/Resolved]
  - Feeding disorder [Unknown]
  - Gastrointestinal disorder [Unknown]
  - Musculoskeletal chest pain [Recovered/Resolved]
  - Abdominal pain upper [Recovered/Resolved]
  - Stomach mass [Unknown]
  - Nausea [Recovered/Resolved]

NARRATIVE: CASE EVENT DATE: 20170102
